FAERS Safety Report 10542281 (Version 2)
Quarter: 2014Q4

REPORT INFORMATION
  Report Type: Spontaneous
  Country: US (occurrence: US)
  Receive Date: 20141024
  Receipt Date: 20141027
  Transmission Date: 20150529
  Serious: Yes (Other)
  Sender: FDA-Public Use
  Company Number: ALCN2014US005952

PATIENT
  Age: 52 Year
  Sex: Female

DRUGS (7)
  1. DUREZOL [Suspect]
     Active Substance: DIFLUPREDNATE
     Indication: INTRAOCULAR LENS IMPLANT
     Dosage: UNK
     Route: 031
     Dates: start: 20140822, end: 20140822
  2. BESIVANCE//BESIFLOXACIN [Concomitant]
     Indication: INTRAOCULAR LENS IMPLANT
     Dosage: UNK
     Route: 047
     Dates: start: 20140822, end: 20140822
  3. PROLENSA [Concomitant]
     Active Substance: BROMFENAC SODIUM
     Indication: INTRAOCULAR LENS IMPLANT
     Dosage: UNK
     Route: 047
     Dates: start: 20140822, end: 20140822
  4. BETADINE [Suspect]
     Active Substance: POVIDONE-IODINE
     Indication: INTRAOCULAR LENS IMPLANT
     Dosage: UNK
     Route: 047
     Dates: start: 20140822, end: 20140822
  5. BSS [Suspect]
     Active Substance: CALCIUM CHLORIDE\MAGNESIUM CHLORIDE\POTASSIUM CHLORIDE\SODIUM ACETATE\SODIUM CHLORIDE\SODIUM CITRATE
     Indication: INTRAOCULAR LENS IMPLANT
     Dosage: UNK
     Route: 047
     Dates: start: 20140822, end: 20140822
  6. LIDOCAINE. [Concomitant]
     Active Substance: LIDOCAINE
     Indication: INTRAOCULAR LENS IMPLANT
     Dosage: UNK
     Route: 047
     Dates: start: 20140822, end: 20140822
  7. EPINEPHRINE. [Concomitant]
     Active Substance: EPINEPHRINE
     Indication: INTRAOCULAR LENS IMPLANT
     Dosage: UNK
     Route: 047
     Dates: start: 20140822, end: 20140822

REACTIONS (3)
  - Off label use [Unknown]
  - Endophthalmitis [Unknown]
  - Vitritis [Unknown]

NARRATIVE: CASE EVENT DATE: 20140824
